FAERS Safety Report 5064529-8 (Version None)
Quarter: 2006Q3

REPORT INFORMATION
  Report Type: 
  Country: None (occurrence: None)
  Receive Date: 20060725
  Receipt Date: 20060705
  Transmission Date: 20061208
  Serious: Yes (Other)
  Sender: FDA-Public Use
  Company Number: US200607000665

PATIENT
  Age: 68 Year
  Sex: Female

DRUGS (2)
  1. EVISTA [Suspect]
     Indication: OSTEOPOROSIS
     Dosage: ORAL
     Route: 048
     Dates: start: 20060101, end: 20060704
  2. ACTONEL /USA/ (RISEDRONATE SODIUM) [Concomitant]

REACTIONS (5)
  - CONDITION AGGRAVATED [None]
  - GASTROINTESTINAL PAIN [None]
  - GASTROOESOPHAGEAL REFLUX DISEASE [None]
  - LYMPHADENECTOMY [None]
  - MUSCULOSKELETAL CHEST PAIN [None]
